FAERS Safety Report 10039212 (Version 1)
Quarter: 2014Q1

REPORT INFORMATION
  Report Type: Spontaneous
  Country: CH (occurrence: CH)
  Receive Date: 20140326
  Receipt Date: 20140326
  Transmission Date: 20141002
  Serious: Yes (Death, Other)
  Sender: FDA-Public Use
  Company Number: CH-TEVA-470425ISR

PATIENT
  Age: 75 Year
  Sex: Female
  Weight: 80 kg

DRUGS (8)
  1. METHOTREXATE [Suspect]
     Dosage: 10 MILLIGRAM DAILY;
     Route: 048
     Dates: start: 20140121, end: 201401
  2. OLFEN-100 DEPOCAPS [Interacting]
     Dosage: 300 MILLIGRAM DAILY;
     Route: 048
  3. PREDNISON [Concomitant]
     Route: 065
  4. MARCOUMAR [Concomitant]
     Route: 065
  5. ESOMEP [Concomitant]
     Route: 065
  6. METO ZEROK [Concomitant]
     Route: 065
  7. LOSARTAN [Concomitant]
     Route: 065
  8. VALACICLOVIR [Concomitant]
     Route: 065

REACTIONS (20)
  - Toxicity to various agents [Fatal]
  - Inappropriate schedule of drug administration [Fatal]
  - Drug level increased [Fatal]
  - Bone marrow failure [Fatal]
  - Pancytopenia [Fatal]
  - Septic shock [Fatal]
  - Multi-organ failure [Fatal]
  - Immunosuppression [Fatal]
  - Oral herpes [Unknown]
  - Genital herpes [Unknown]
  - Hepatic failure [Fatal]
  - Hypoglycaemia [Unknown]
  - Lactic acidosis [Unknown]
  - Coagulopathy [Fatal]
  - Duodenitis haemorrhagic [Fatal]
  - Renal failure acute [Unknown]
  - Cardiogenic shock [Recovered/Resolved]
  - Colitis ischaemic [Fatal]
  - Drug interaction [Fatal]
  - Renal failure [Fatal]
